FAERS Safety Report 6120174-4 (Version None)
Quarter: 2009Q1

REPORT INFORMATION
  Report Type: 
  Country: None (occurrence: None)
  Receive Date: 20090316
  Receipt Date: 20090304
  Transmission Date: 20090719
  Serious: No
  Sender: FDA-Public Use
  Company Number: US-ABBOTT-09P-163-0560767-00

PATIENT
  Sex: Male
  Weight: 86.26 kg

DRUGS (5)
  1. TRILIPIX [Suspect]
     Indication: BLOOD TRIGLYCERIDES INCREASED
     Dates: start: 20090218
  2. GLIPIZIDE [Concomitant]
     Indication: DIABETES MELLITUS
  3. SIMVASTATIN [Concomitant]
     Indication: BLOOD CHOLESTEROL
  4. LISINOPRIL [Concomitant]
     Indication: BLOOD PRESSURE
  5. METFORMIN HCL [Concomitant]
     Indication: DIABETES MELLITUS

REACTIONS (3)
  - DIARRHOEA [None]
  - DYSPEPSIA [None]
  - FLATULENCE [None]
